FAERS Safety Report 24714274 (Version 1)
Quarter: 2024Q4

REPORT INFORMATION
  Report Type: Spontaneous
  Country: US (occurrence: US)
  Receive Date: 20241209
  Receipt Date: 20241209
  Transmission Date: 20250114
  Serious: No
  Sender: AMGEN
  Company Number: US-AMGEN-USASP2024238446

PATIENT
  Age: 57 Year
  Sex: Male

DRUGS (1)
  1. PREDNISONE [Suspect]
     Active Substance: PREDNISONE
     Indication: Lichen myxoedematosus
     Dosage: UNK
     Route: 065

REACTIONS (7)
  - Granuloma annulare [Recovering/Resolving]
  - Erythema [Recovered/Resolved]
  - Monoclonal gammopathy [Recovering/Resolving]
  - Skin hypertrophy [Recovering/Resolving]
  - Peripheral swelling [Recovering/Resolving]
  - Drug ineffective for unapproved indication [Unknown]
  - Off label use [Unknown]
